FAERS Safety Report 24731321 (Version 3)
Quarter: 2025Q1

REPORT INFORMATION
  Report Type: Spontaneous
  Country: CA (occurrence: CA)
  Receive Date: 20241213
  Receipt Date: 20250116
  Transmission Date: 20250409
  Serious: Yes (Other)
  Sender: PFIZER
  Company Number: CA-PFIZER INC-202400226654

PATIENT
  Age: 67 Year
  Sex: Female

DRUGS (4)
  1. RUXIENCE [Suspect]
     Active Substance: RITUXIMAB-PVVR
     Indication: Granulomatosis with polyangiitis
     Dosage: 700 MG, WEEKLY, Q1 WEEK X 4 DOSES
     Route: 042
     Dates: start: 20240508
  2. RUXIENCE [Suspect]
     Active Substance: RITUXIMAB-PVVR
     Dosage: 700 MG, WEEKLY, Q1 WEEK X 4 DOSES
     Route: 042
     Dates: start: 20240529
  3. RUXIENCE [Suspect]
     Active Substance: RITUXIMAB-PVVR
     Route: 042
     Dates: start: 20241203
  4. RUXIENCE [Suspect]
     Active Substance: RITUXIMAB-PVVR
     Route: 042
     Dates: start: 20250110

REACTIONS (8)
  - Bacteraemia [Unknown]
  - Parasite blood test positive [Unknown]
  - Muscle spasms [Unknown]
  - Pain in extremity [Unknown]
  - Peripheral swelling [Unknown]
  - Off label use [Unknown]
  - Intentional product use issue [Unknown]
  - Off label use [Unknown]

NARRATIVE: CASE EVENT DATE: 20240101
